FAERS Safety Report 8998235 (Version 1)
Quarter: 2013Q1

REPORT INFORMATION
  Report Type: Spontaneous
  Country: HR (occurrence: HR)
  Receive Date: 20130104
  Receipt Date: 20130104
  Transmission Date: 20140127
  Serious: Yes (Hospitalization)
  Sender: FDA-Public Use
  Company Number: HR-TEVA-377848ISR

PATIENT
  Age: 18 Year
  Sex: Female

DRUGS (3)
  1. TEGRETOL CR [Suspect]
     Indication: EPILEPSY
     Route: 048
     Dates: start: 20120605, end: 20120704
  2. DEPAKINE CHRONO [Concomitant]
     Indication: EPILEPSY
     Route: 048
  3. NORMABEL [Concomitant]
     Indication: EPILEPSY
     Dosage: 4 MILLIGRAM DAILY;
     Route: 048

REACTIONS (3)
  - Febrile neutropenia [Recovered/Resolved]
  - Rash macular [Recovered/Resolved]
  - Transaminases increased [Recovered/Resolved]
